FAERS Safety Report 6072598-1 (Version None)
Quarter: 2009Q1

REPORT INFORMATION
  Report Type: 
  Country: None (occurrence: None)
  Receive Date: 20090210
  Receipt Date: 20090203
  Transmission Date: 20090719
  Serious: Yes (Life-Threatening, Hospitalization)
  Sender: FDA-Public Use
  Company Number: GB-ELI_LILLY_AND_COMPANY-GB200902000058

PATIENT
  Sex: Female

DRUGS (4)
  1. BYETTA [Suspect]
     Dosage: 5 UG, UNKNOWN
     Route: 065
     Dates: start: 20090126, end: 20090129
  2. INSULATARD [Concomitant]
     Dosage: UNK, 2/D
     Route: 065
     Dates: end: 20090101
  3. GLICLAZIDE [Concomitant]
     Dosage: 80 MG, 2/D
     Route: 065
     Dates: start: 20090121, end: 20090129
  4. GLUCOPHAGE [Concomitant]
     Dosage: 2 G, DAILY (1/D)
     Route: 065
     Dates: start: 20050101, end: 20090129

REACTIONS (1)
  - METABOLIC ACIDOSIS [None]
